FAERS Safety Report 26157824 (Version 1)
Quarter: 2025Q4

REPORT INFORMATION
  Report Type: Spontaneous
  Country: US (occurrence: None)
  Receive Date: 20251213
  Receipt Date: 20251213
  Transmission Date: 20260118
  Serious: Yes (Other)
  Sender: FDA-CTU
  Company Number: None

PATIENT
  Age: 74 Year
  Sex: Male
  Weight: 72 kg

DRUGS (7)
  1. CIBINQO [Suspect]
     Active Substance: ABROCITINIB
     Indication: Eczema
     Dosage: 1 TABLET DAILY ORAL
     Route: 048
     Dates: start: 20251001, end: 20251213
  2. Atorvastatin40mg [Concomitant]
  3. AMLODIPINE [Concomitant]
     Active Substance: AMLODIPINE BESYLATE
  4. Tamsulosin .4mg [Concomitant]
  5. ASA 80mg [Concomitant]
  6. VITAMINS [Concomitant]
     Active Substance: VITAMINS
  7. VITAMIN C [Concomitant]
     Active Substance: ASCORBIC ACID

REACTIONS (3)
  - Joint swelling [None]
  - Peripheral swelling [None]
  - Peripheral swelling [None]

NARRATIVE: CASE EVENT DATE: 20251206
